FAERS Safety Report 7414749-X (Version None)
Quarter: 2011Q2

REPORT INFORMATION
  Report Type: 
  Country: None (occurrence: None)
  Receive Date: 20110406
  Receipt Date: 20110330
  Transmission Date: 20111010
  Serious: Yes (Hospitalization, Other)
  Sender: FDA-Public Use
  Company Number: 2009-200460-NL

PATIENT
  Age: 39 Year
  Sex: Female
  Weight: 79.3795 kg

DRUGS (5)
  1. NUVARING [Suspect]
     Indication: CONTRACEPTION
     Dosage: QM;VAG
     Route: 067
     Dates: start: 20071218, end: 20080801
  2. CLARITIN [Concomitant]
  3. TOPAMAX [Concomitant]
  4. ZOLOFT [Concomitant]
  5. PRILOSEC [Concomitant]

REACTIONS (25)
  - TIC [None]
  - THYROID CYST [None]
  - BACK PAIN [None]
  - OVERWEIGHT [None]
  - SOMNOLENCE [None]
  - CERVICAL DYSPLASIA [None]
  - THROMBOPHLEBITIS SUPERFICIAL [None]
  - VULVA CYST [None]
  - SLEEP APNOEA SYNDROME [None]
  - ACUTE SINUSITIS [None]
  - MIGRAINE [None]
  - PHOTOREFRACTIVE KERATECTOMY [None]
  - OEDEMA PERIPHERAL [None]
  - MYALGIA [None]
  - DEEP VEIN THROMBOSIS [None]
  - FATIGUE [None]
  - GOITRE [None]
  - PRESBYOPIA [None]
  - MUSCLE TIGHTNESS [None]
  - DRY EYE [None]
  - CHEST PAIN [None]
  - UTERINE LEIOMYOMA [None]
  - MYOPIA [None]
  - HYPOTHYROIDISM [None]
  - PAIN IN EXTREMITY [None]
